FAERS Safety Report 11232828 (Version 1)
Quarter: 2015Q3

REPORT INFORMATION
  Report Type: Spontaneous
  Country: US (occurrence: US)
  Receive Date: 20150701
  Receipt Date: 20150701
  Transmission Date: 20151125
  Serious: Yes (Other)
  Sender: FDA-Public Use
  Company Number: US-TEVA-573200USA

PATIENT
  Age: 35 Year
  Sex: Female

DRUGS (1)
  1. CROMOGLICIC ACID [Suspect]
     Active Substance: CROMOLYN
     Indication: ASTHMA PROPHYLAXIS
     Route: 055
     Dates: start: 20150622

REACTIONS (4)
  - Oral discomfort [Unknown]
  - Choking [Unknown]
  - Dysphonia [Unknown]
  - Muscle spasms [Unknown]

NARRATIVE: CASE EVENT DATE: 20150622
